FAERS Safety Report 10471639 (Version 2)
Quarter: 2014Q3

REPORT INFORMATION
  Report Type: Report from Study
  Country: HU (occurrence: HU)
  Receive Date: 20140923
  Receipt Date: 20140925
  Transmission Date: 20150326
  Serious: Yes (Other)
  Sender: FDA-Public Use
  Company Number: PHHY2014HU117097

PATIENT
  Age: 54 Year
  Sex: Female

DRUGS (2)
  1. ONBREZ BREEZHALER [Suspect]
     Active Substance: INDACATEROL
     Indication: CHRONIC OBSTRUCTIVE PULMONARY DISEASE
     Dosage: 1 DOSE QD
     Dates: start: 20121001
  2. SALBUTAMOL [Suspect]
     Active Substance: ALBUTEROL
     Dosage: 4 PUFFS DAILY

REACTIONS (6)
  - Cough [Recovered/Resolved]
  - Exercise tolerance decreased [Recovered/Resolved]
  - Sputum purulent [Recovering/Resolving]
  - Pulmonary function test decreased [Recovering/Resolving]
  - Chronic obstructive pulmonary disease [Recovered/Resolved]
  - Productive cough [Recovered/Resolved]
